FAERS Safety Report 25057222 (Version 2)
Quarter: 2025Q3

REPORT INFORMATION
  Report Type: Report from Study
  Country: US (occurrence: US)
  Receive Date: 20250310
  Receipt Date: 20250810
  Transmission Date: 20251021
  Serious: Yes (Other)
  Sender: ALEXION PHARMACEUTICALS
  Company Number: US-AstraZeneca-CH-00819948A

PATIENT
  Sex: Female

DRUGS (1)
  1. OSIMERTINIB [Suspect]
     Active Substance: OSIMERTINIB
     Route: 065

REACTIONS (8)
  - Tumour thrombosis [Unknown]
  - Gastrooesophageal reflux disease [Unknown]
  - Corrective lens user [Unknown]
  - Nausea [Unknown]
  - Somnolence [Unknown]
  - Product after taste [Unknown]
  - Candida infection [Unknown]
  - Decreased appetite [Unknown]
